FAERS Safety Report 5332801-X (Version None)
Quarter: 2007Q2

REPORT INFORMATION
  Report Type: 
  Country: None (occurrence: None)
  Receive Date: 20070523
  Receipt Date: 20070511
  Transmission Date: 20071010
  Serious: Yes (Other)
  Sender: FDA-Public Use
  Company Number: US-PFIZER INC-2007040027

PATIENT
  Sex: Female
  Weight: 59.09 kg

DRUGS (2)
  1. CHANTIX [Suspect]
     Indication: SMOKING CESSATION THERAPY
     Dates: start: 20070101, end: 20070301
  2. SYNTHROID [Concomitant]

REACTIONS (6)
  - INITIAL INSOMNIA [None]
  - JOINT INJURY [None]
  - MIDDLE INSOMNIA [None]
  - MUSCLE SPASMS [None]
  - NECK INJURY [None]
  - ROAD TRAFFIC ACCIDENT [None]
